FAERS Safety Report 7304679-6 (Version None)
Quarter: 2011Q1

REPORT INFORMATION
  Report Type: 
  Country: None (occurrence: None)
  Receive Date: 20110222
  Receipt Date: 20110207
  Transmission Date: 20110831
  Serious: Yes (Life-Threatening, Hospitalization, Other)
  Sender: FDA-Public Use
  Company Number: DE-CELGENEUS-062-21880-10082887

PATIENT
  Age: 67 Year
  Sex: Male
  Weight: 70 kg

DRUGS (12)
  1. ALBUTEROL [Concomitant]
     Route: 065
  2. METOPROLOL [Concomitant]
     Route: 065
  3. CLEXANE [Concomitant]
     Indication: THROMBOSIS PROPHYLAXIS
     Route: 058
  4. KONAKION [Concomitant]
     Route: 051
     Dates: start: 20100826, end: 20100827
  5. CALCIUM [Concomitant]
     Indication: OSTEOPOROSIS
     Route: 048
  6. REVLIMID [Suspect]
     Route: 048
     Dates: start: 20100708, end: 20100827
  7. CALCIFEROL [Concomitant]
     Indication: OSTEOPOROSIS
     Route: 048
  8. METOPROLOL [Concomitant]
     Indication: HYPERTENSION
     Route: 048
  9. METOPROLOL [Concomitant]
     Indication: HYPERTONIA
     Route: 051
  10. RAMIPRIL [Concomitant]
     Indication: HYPERTENSION
     Route: 048
  11. PANTAZOL [Concomitant]
     Route: 048
     Dates: start: 20100628, end: 20100906
  12. RAMILION [Concomitant]
     Indication: HYPERTONIA
     Route: 048

REACTIONS (5)
  - FEBRILE NEUTROPENIA [None]
  - ATRIAL FIBRILLATION [None]
  - PYREXIA [None]
  - LEUKOPENIA [None]
  - INFECTION [None]
